FAERS Safety Report 6510066-0 (Version None)
Quarter: 2009Q4

REPORT INFORMATION
  Report Type: 
  Country: None (occurrence: None)
  Receive Date: 20091222
  Receipt Date: 20090925
  Transmission Date: 20100525
  Serious: No
  Sender: FDA-Public Use
  Company Number: US-BAUSCH-2009BL004867

PATIENT
  Sex: Male

DRUGS (2)
  1. BESIVANCE [Suspect]
     Indication: HORDEOLUM
     Route: 047
     Dates: start: 20090921, end: 20090925
  2. BESIVANCE [Suspect]
     Indication: OFF LABEL USE
     Route: 047
     Dates: start: 20090921, end: 20090925

REACTIONS (1)
  - EYELID OEDEMA [None]
